FAERS Safety Report 9945822 (Version 1)
Quarter: 2014Q1

REPORT INFORMATION
  Report Type: Spontaneous
  Country: US (occurrence: US)
  Receive Date: 20140303
  Receipt Date: 20140303
  Transmission Date: 20141002
  Serious: No
  Sender: FDA-Public Use
  Company Number: US-AMGEN-USASP2013068146

PATIENT
  Age: 65 Year
  Sex: Male

DRUGS (7)
  1. ENBREL [Suspect]
     Indication: PRODUCT USED FOR UNKNOWN INDICATION
     Dosage: 50 MG, QWK
     Route: 058
  2. METHOTREXATE [Concomitant]
     Dosage: 20 MG, UNK
  3. AVAPRO [Concomitant]
     Dosage: 75 MG, UNK
  4. LEVOTHROID [Concomitant]
     Dosage: 137 MUG (MCG), UNK
  5. METFORMIN [Concomitant]
     Dosage: 500 MG, UNK
  6. CRESTOR [Concomitant]
     Dosage: 10 MG, UNK
  7. FLOMAX                             /01280302/ [Concomitant]
     Dosage: 0.4 MG, UNK

REACTIONS (1)
  - Nausea [Unknown]
